FAERS Safety Report 19510813 (Version 1)
Quarter: 2021Q3

REPORT INFORMATION
  Report Type: Report from Study
  Country: JP (occurrence: JP)
  Receive Date: 20210709
  Receipt Date: 20210709
  Transmission Date: 20211014
  Serious: Yes (Other)
  Sender: FDA-Public Use
  Company Number: JP-HRARD-2021000589

PATIENT
  Age: 62 Year
  Sex: Male

DRUGS (1)
  1. MITOTANE [Suspect]
     Active Substance: MITOTANE

REACTIONS (1)
  - Hallucination [Unknown]
